FAERS Safety Report 11484040 (Version 1)
Quarter: 2015Q3

REPORT INFORMATION
  Report Type: Spontaneous
  Country: US (occurrence: US)
  Receive Date: 20150903
  Receipt Date: 20150903
  Transmission Date: 20151125
  Serious: Yes (Hospitalization)
  Sender: FDA-Public Use
  Company Number: US-ELI_LILLY_AND_COMPANY-US201108002758

PATIENT
  Age: 55 Year
  Sex: Female

DRUGS (18)
  1. CYMBALTA [Suspect]
     Active Substance: DULOXETINE HYDROCHLORIDE
     Dosage: UNK, UNKNOWN
     Dates: start: 2009
  2. MUCINEX [Concomitant]
     Active Substance: GUAIFENESIN
     Dosage: UNK
     Dates: start: 20101117
  3. PHENERGAN [Concomitant]
     Active Substance: PROMETHAZINE HYDROCHLORIDE
     Dosage: UNK
     Dates: start: 20101222
  4. NORCO [Concomitant]
     Active Substance: ACETAMINOPHEN\HYDROCODONE BITARTRATE
     Dosage: UNK
  5. XANAX                                   /USA/ [Concomitant]
     Dosage: UNK
     Dates: start: 2003
  6. SEROQUEL [Concomitant]
     Active Substance: QUETIAPINE FUMARATE
     Dosage: UNK
     Dates: start: 2010
  7. ALBUTEROL. [Concomitant]
     Active Substance: ALBUTEROL
     Dosage: UNK
     Dates: start: 2007
  8. INVESTIGATIONAL DRUG [Concomitant]
     Active Substance: INVESTIGATIONAL PRODUCT
     Indication: HEPATITIS C
     Dosage: UNK
     Dates: start: 20101028, end: 20110602
  9. PEGASYS [Concomitant]
     Active Substance: PEGINTERFERON ALFA-2A
     Indication: HEPATITIS C
     Dosage: 90 MG, WEEKLY (1/W)
     Dates: start: 20101028, end: 20110601
  10. MORPHINE SULFATE. [Concomitant]
     Active Substance: MORPHINE SULFATE
  11. NEUPOGEN [Concomitant]
     Active Substance: FILGRASTIM
     Dosage: UNK
     Dates: start: 20101124
  12. OXYCONTIN [Concomitant]
     Active Substance: OXYCODONE HYDROCHLORIDE
     Dosage: UNK
     Dates: start: 2008
  13. RIBAVIRIN. [Concomitant]
     Active Substance: RIBAVIRIN
     Indication: HEPATITIS C
     Dosage: 1 DF, UNKNOWN
     Dates: start: 20101028, end: 20110602
  14. DEPAKOTE [Concomitant]
     Active Substance: DIVALPROEX SODIUM
     Dosage: UNK
     Dates: start: 20100101
  15. CALCIUM CARBONATE. [Concomitant]
     Active Substance: CALCIUM CARBONATE
     Dosage: UNK
  16. PLACEBO [Concomitant]
     Active Substance: UNSPECIFIED INGREDIENT
     Indication: HEPATITIS C
     Dosage: UNK
     Dates: start: 20101028, end: 20110602
  17. AMBIEN [Concomitant]
     Active Substance: ZOLPIDEM TARTRATE
     Dosage: UNK
     Dates: start: 2008
  18. ZANTAC [Concomitant]
     Active Substance: RANITIDINE HYDROCHLORIDE
     Dosage: UNK
     Dates: start: 20101114

REACTIONS (2)
  - Ileus [Recovered/Resolved]
  - Serotonin syndrome [Recovered/Resolved]

NARRATIVE: CASE EVENT DATE: 20110603
